FAERS Safety Report 23230488 (Version 1)
Quarter: 2023Q4

REPORT INFORMATION
  Report Type: Spontaneous
  Country: RO (occurrence: RO)
  Receive Date: 20231127
  Receipt Date: 20231127
  Transmission Date: 20240110
  Serious: Yes (Hospitalization)
  Sender: FDA-Public Use
  Company Number: RO-AMGEN-ROUSP2023122711

PATIENT
  Age: 18 Year
  Sex: Male

DRUGS (1)
  1. ADALIMUMAB [Suspect]
     Active Substance: ADALIMUMAB\ISOPROPYL ALCOHOL
     Indication: Crohn^s disease
     Dosage: UNK
     Route: 065

REACTIONS (14)
  - Gastrointestinal ulcer [Unknown]
  - Weight decreased [Unknown]
  - Diarrhoea [Unknown]
  - Abscess intestinal [Unknown]
  - Intestinal stenosis [Unknown]
  - Large intestinal stenosis [Unknown]
  - Hiatus hernia [Unknown]
  - Anal fistula [Unknown]
  - Gastrointestinal fistula [Unknown]
  - Hypochromic anaemia [Unknown]
  - Gastrointestinal inflammation [Unknown]
  - Gastrooesophageal reflux disease [Unknown]
  - Escherichia infection [Unknown]
  - Proteus infection [Unknown]
